FAERS Safety Report 19746757 (Version 3)
Quarter: 2021Q3

REPORT INFORMATION
  Report Type: Report from Study
  Country: AT (occurrence: AT)
  Receive Date: 20210826
  Receipt Date: 20210929
  Transmission Date: 20211014
  Serious: No
  Sender: FDA-Public Use
  Company Number: AT-ROCHE-2893846

PATIENT
  Age: 68 Year
  Sex: Female
  Weight: 81.5 kg

DRUGS (3)
  1. TRASTUZUMAB. [Suspect]
     Active Substance: TRASTUZUMAB
     Indication: HER2 POSITIVE BREAST CANCER
     Dosage: ON 17/AUG/2021, SHE RECEIVED MOST RECENT DOSE OF TRASTUZUMAB (652 MG) PRIOR TO ONSET OF ADVERSE EVEN
     Route: 041
     Dates: start: 20210817
  2. PERTUZUMAB. [Suspect]
     Active Substance: PERTUZUMAB
     Indication: HER2 POSITIVE BREAST CANCER
     Dosage: ON 17/AUG/2021, SHE RECEIVED MOST RECENT DOSE OF PERTUZUMAB (840 MG) PRIOR TO ONSET OF ADVERSE EVENT
     Route: 042
     Dates: start: 20210817
  3. ATEZOLIZUMAB. [Suspect]
     Active Substance: ATEZOLIZUMAB
     Indication: HER2 POSITIVE BREAST CANCER
     Dosage: ON 17/AUG/2021, SHE RECEIVED MOST RECENT DOSE OF ATEZOLIZUMAB (1200 MG) PRIOR TO ONSET OF ADVERSE EV
     Route: 041
     Dates: start: 20210817

REACTIONS (1)
  - Infusion related reaction [Recovered/Resolved]

NARRATIVE: CASE EVENT DATE: 20210817
